FAERS Safety Report 12586344 (Version 1)
Quarter: 2016Q3

REPORT INFORMATION
  Report Type: Spontaneous
  Country: US (occurrence: US)
  Receive Date: 20160725
  Receipt Date: 20160725
  Transmission Date: 20161109
  Serious: Yes (Hospitalization)
  Sender: FDA-Public Use
  Company Number: US-HORIZON-ACT-0176-2016

PATIENT
  Age: 78 Year
  Sex: Female

DRUGS (1)
  1. ACTIMMUNE [Suspect]
     Active Substance: INTERFERON GAMMA-1B
     Indication: PULMONARY FIBROSIS
     Dosage: 1 ML TIW
     Route: 058
     Dates: start: 20150619

REACTIONS (2)
  - Off label use [Unknown]
  - Lung infection [Unknown]
